FAERS Safety Report 10425691 (Version 3)
Quarter: 2014Q3

REPORT INFORMATION
  Report Type: Spontaneous
  Country: US (occurrence: US)
  Receive Date: 20140903
  Receipt Date: 20140923
  Transmission Date: 20150326
  Serious: No
  Sender: FDA-Public Use
  Company Number: US-009507513-1409USA001042

PATIENT
  Age: 43 Year
  Sex: Male
  Weight: 74.83 kg

DRUGS (1)
  1. DULERA [Suspect]
     Active Substance: FORMOTEROL FUMARATE DIHYDRATE\MOMETASONE FUROATE
     Indication: ASTHMA
     Dosage: 2 PUFFS, TWICE A DAY, STRENGTH WAS 100/5 (UNITE UNSPECIFIED)
     Route: 055
     Dates: start: 20130722, end: 20130723

REACTIONS (2)
  - Pruritus [Not Recovered/Not Resolved]
  - Vasculitic rash [Not Recovered/Not Resolved]

NARRATIVE: CASE EVENT DATE: 20130723
